FAERS Safety Report 7365664-1 (Version None)
Quarter: 2011Q1

REPORT INFORMATION
  Report Type: 
  Country: None (occurrence: None)
  Receive Date: 20110225
  Receipt Date: 20101217
  Transmission Date: 20110831
  Serious: No
  Sender: FDA-Public Use
  Company Number: 320412

PATIENT
  Age: 58 Year
  Sex: Male

DRUGS (1)
  1. VICTOZA [Suspect]
     Indication: TYPE 2 DIABETES MELLITUS
     Dosage: SUBCUTANEOUS
     Route: 058
     Dates: start: 20100301

REACTIONS (5)
  - REGURGITATION [None]
  - INJECTION SITE HAEMATOMA [None]
  - WEIGHT DECREASED [None]
  - ABDOMINAL DISTENSION [None]
  - VOMITING [None]
